FAERS Safety Report 5578827-2 (Version None)
Quarter: 2007Q4

REPORT INFORMATION
  Report Type: 
  Country: None (occurrence: None)
  Receive Date: 20071228
  Receipt Date: 20071217
  Transmission Date: 20080405
  Serious: Yes (Life-Threatening, Hospitalization)
  Sender: FDA-Public Use
  Company Number: CLOF-1000002

PATIENT

DRUGS (4)
  1. CLOLAR (CLOFARABINE) SOLUTION FOR INFUSION [Suspect]
     Indication: ACUTE MYELOID LEUKAEMIA
  2. CLOLAR (CLOFARABINE) SOLUTION FOR INFUSION [Suspect]
     Indication: MYELODYSPLASTIC SYNDROME
  3. CYTARABINE [Suspect]
     Indication: ACUTE MYELOID LEUKAEMIA
  4. CYTARABINE [Suspect]
     Indication: MYELODYSPLASTIC SYNDROME

REACTIONS (11)
  - ANAEMIA [None]
  - CARDIOTOXICITY [None]
  - DIALYSIS [None]
  - HEPATOTOXICITY [None]
  - HYPOKALAEMIA [None]
  - HYPONATRAEMIA [None]
  - INFECTION [None]
  - NEPHROPATHY TOXIC [None]
  - NEUTROPENIA [None]
  - PYREXIA [None]
  - THROMBOCYTOPENIA [None]
